FAERS Safety Report 15191214 (Version 1)
Quarter: 2018Q3

REPORT INFORMATION
  Report Type: Spontaneous
  Country: IN (occurrence: IN)
  Receive Date: 20180724
  Receipt Date: 20180724
  Transmission Date: 20181010
  Serious: Yes (Other)
  Sender: FDA-Public Use
  Company Number: IN-JNJFOC-20180720277

PATIENT
  Age: 80 Year
  Sex: Male
  Weight: 60 kg

DRUGS (5)
  1. IBRUTINIB [Suspect]
     Active Substance: IBRUTINIB
     Indication: CHRONIC LYMPHOCYTIC LEUKAEMIA REFRACTORY
     Route: 048
     Dates: start: 20171128
  2. IBRUTINIB [Suspect]
     Active Substance: IBRUTINIB
     Indication: CHRONIC LYMPHOCYTIC LEUKAEMIA REFRACTORY
     Route: 048
     Dates: start: 20171109, end: 20171120
  3. ZOLFRESH [Concomitant]
     Active Substance: ZOLPIDEM TARTRATE
     Indication: INSOMNIA
     Dosage: SOS (AS NECESSARY)
     Route: 065
     Dates: start: 20171112
  4. VALACICLOVIR [Concomitant]
     Active Substance: VALACYCLOVIR HYDROCHLORIDE
     Indication: HERPES VIRUS INFECTION
     Route: 065
     Dates: start: 20171118, end: 20171209
  5. PANTOPRAZOLE [Concomitant]
     Active Substance: PANTOPRAZOLE
     Route: 065
     Dates: start: 20171114

REACTIONS (16)
  - Cough [Unknown]
  - Insomnia [Unknown]
  - Constipation [Recovered/Resolved]
  - Nasopharyngitis [Unknown]
  - Pancytopenia [Unknown]
  - Decreased appetite [Recovered/Resolved]
  - Erythema [Unknown]
  - Tonsillar inflammation [Unknown]
  - Thrombocytopenia [Unknown]
  - Cardiac arrest [Unknown]
  - Abdominal discomfort [Recovered/Resolved]
  - Tachycardia [Unknown]
  - Pain [Unknown]
  - Anaemia [Unknown]
  - Restlessness [Unknown]
  - Anxiety [Recovered/Resolved]

NARRATIVE: CASE EVENT DATE: 20171109
